FAERS Safety Report 25508776 (Version 1)
Quarter: 2025Q3

REPORT INFORMATION
  Report Type: Spontaneous
  Country: EU (occurrence: EU)
  Receive Date: 20250703
  Receipt Date: 20250703
  Transmission Date: 20251020
  Serious: Yes (Hospitalization)
  Sender: SANDOZ
  Company Number: EU-Clinigen Group PLC/ Clinigen Healthcare Ltd-DE-CLGN-22-00341

PATIENT
  Age: 58 Year
  Sex: Male
  Weight: 98.5 kg

DRUGS (20)
  1. CYCLOPHOSPHAMIDE [Suspect]
     Active Substance: CYCLOPHOSPHAMIDE
     Indication: Neoplasm
     Dosage: 60 MG/KG, QD
     Route: 042
     Dates: start: 20220802, end: 20220803
  2. FLUDARABINE [Suspect]
     Active Substance: FLUDARABINE PHOSPHATE
     Indication: Neoplasm
     Dosage: 25 MG/M2, QD
     Route: 042
     Dates: start: 20220804, end: 20220808
  3. PEMBROLIZUMAB [Suspect]
     Active Substance: PEMBROLIZUMAB
     Indication: Neoplasm
     Dosage: 400 MG, QD
     Route: 042
     Dates: start: 20220629, end: 20220629
  4. PROLEUKIN [Suspect]
     Active Substance: ALDESLEUKIN
     Indication: Neoplasm
     Dosage: 600000 IU/KG, QD
     Route: 042
     Dates: start: 20220809, end: 20220813
  5. Aldiamed mouthwash [Concomitant]
     Indication: Product used for unknown indication
     Dosage: 1 APPLICATION
     Route: 048
     Dates: start: 20220803
  6. AMPHO-MORONAL [Concomitant]
     Active Substance: AMPHOTERICIN B
     Indication: Prophylaxis
     Dosage: 1 ML, QD
     Route: 042
     Dates: start: 20220802
  7. APREPITANT [Concomitant]
     Active Substance: APREPITANT
     Indication: Prophylaxis
     Dosage: 80 MG, QD
     Route: 048
     Dates: start: 20220802, end: 20220802
  8. COTRIM [Concomitant]
     Active Substance: SULFAMETHOXAZOLE\TRIMETHOPRIM
     Indication: Prophylaxis
     Dosage: 980 MG, QW
     Route: 048
     Dates: start: 20220803
  9. FRESUBIN [Concomitant]
     Active Substance: AMINO ACIDS\DEXTROSE\ELECTROLYTES NOS\SOYBEAN OIL\VITAMINS
     Indication: Decreased appetite
     Route: 048
     Dates: start: 20220804
  10. GRANISETRON [Concomitant]
     Active Substance: GRANISETRON
     Indication: Vomiting
     Dosage: 3.35 G, QD
     Route: 042
     Dates: start: 20220809
  11. GRANISETRON [Concomitant]
     Active Substance: GRANISETRON
     Indication: Prophylaxis
     Dosage: 33 MG, QD
     Route: 042
     Dates: start: 20220802
  12. IBUPROFEN [Concomitant]
     Active Substance: IBUPROFEN
     Indication: Osteoarthritis
     Route: 048
     Dates: start: 2012
  13. INNOHEP [Concomitant]
     Active Substance: TINZAPARIN SODIUM
     Indication: Prophylaxis
     Dosage: 4500 IU, QD
     Route: 058
     Dates: start: 20220801
  14. Jonosteril [Concomitant]
     Indication: Prophylaxis
     Route: 042
     Dates: start: 20220802
  15. ACETAMINOPHEN [Concomitant]
     Active Substance: ACETAMINOPHEN
     Indication: Prophylaxis
     Dosage: 500 MG, QD
     Route: 048
     Dates: start: 20220808
  16. AMINO ACIDS\DEXTROSE\ELECTROLYTES NOS\SOYBEAN OIL [Concomitant]
     Active Substance: AMINO ACIDS\DEXTROSE\ELECTROLYTES NOS\SOYBEAN OIL
     Indication: Decreased appetite
     Route: 042
     Dates: start: 20220811
  17. VALTREX [Concomitant]
     Active Substance: VALACYCLOVIR HYDROCHLORIDE
     Indication: Prophylaxis
     Dosage: 500 MG, QD
     Route: 048
     Dates: start: 20220801
  18. Vomex [Concomitant]
     Indication: Vomiting
     Route: 042
     Dates: start: 20220809
  19. ZOFRAN [Concomitant]
     Active Substance: ONDANSETRON HYDROCHLORIDE
     Indication: Nausea
     Route: 048
     Dates: start: 20220803
  20. ZOPICLONE [Concomitant]
     Active Substance: ZOPICLONE
     Indication: Prophylaxis
     Route: 048
     Dates: start: 20220802

REACTIONS (1)
  - General physical health deterioration [Recovering/Resolving]

NARRATIVE: CASE EVENT DATE: 20220814
